FAERS Safety Report 10488185 (Version 2)
Quarter: 2014Q4

REPORT INFORMATION
  Report Type: Spontaneous
  Country: US (occurrence: US)
  Receive Date: 20141002
  Receipt Date: 20141021
  Transmission Date: 20150528
  Serious: Yes (Hospitalization)
  Sender: FDA-Public Use
  Company Number: US-ROCHE-1468789

PATIENT
  Age: 41 Year
  Sex: Female

DRUGS (1)
  1. XELODA [Suspect]
     Active Substance: CAPECITABINE
     Indication: NEOPLASM MALIGNANT
     Route: 048
     Dates: start: 20140911

REACTIONS (5)
  - Chest pain [Unknown]
  - Nausea [Recovering/Resolving]
  - Drug dose omission [Unknown]
  - Vomiting [Recovering/Resolving]
  - Pulmonary pain [Unknown]

NARRATIVE: CASE EVENT DATE: 20140930
